FAERS Safety Report 14382318 (Version 1)
Quarter: 2018Q1

REPORT INFORMATION
  Report Type: Spontaneous
  Country: US (occurrence: US)
  Receive Date: 20180112
  Receipt Date: 20180112
  Transmission Date: 20180509
  Serious: No
  Sender: FDA-Public Use
  Company Number: US-PERRIGO-17US025585

PATIENT
  Age: 81 Year
  Sex: Female
  Weight: 59.86 kg

DRUGS (1)
  1. IBUPROFEN. [Suspect]
     Active Substance: IBUPROFEN
     Indication: BACK PAIN
     Dosage: 200 MG, QHS
     Route: 048
     Dates: start: 20170729, end: 20170731

REACTIONS (3)
  - Hyperhidrosis [Recovered/Resolved]
  - Therapeutic response unexpected [Recovered/Resolved]
  - Expired product administered [Recovered/Resolved]

NARRATIVE: CASE EVENT DATE: 20170729
